FAERS Safety Report 5275515-7 (Version None)
Quarter: 2007Q1

REPORT INFORMATION
  Report Type: 
  Country: None (occurrence: None)
  Receive Date: 20070326
  Receipt Date: 20070312
  Transmission Date: 20070707
  Serious: No
  Sender: FDA-Public Use
  Company Number: US-AMGEN-STX203856

PATIENT
  Sex: Female

DRUGS (7)
  1. ENBREL [Suspect]
     Indication: RHEUMATOID ARTHRITIS
     Route: 058
     Dates: start: 20030501
  2. REMICADE [Concomitant]
     Dates: start: 20020801
  3. LEVOTHYROXINE SODIUM [Concomitant]
     Route: 048
  4. EFFEXOR [Concomitant]
     Route: 048
  5. ELAVIL [Concomitant]
  6. PHENERGAN HCL [Concomitant]
  7. PREDNISONE [Concomitant]

REACTIONS (1)
  - SCIATICA [None]
